FAERS Safety Report 18730074 (Version 3)
Quarter: 2021Q2

REPORT INFORMATION
  Report Type: Spontaneous
  Country: US (occurrence: US)
  Receive Date: 20210112
  Receipt Date: 20210422
  Transmission Date: 20210717
  Serious: Yes (Other)
  Sender: FDA-Public Use
  Company Number: US-NOVOPROD-778681

PATIENT
  Age: 5 Year
  Sex: Female

DRUGS (1)
  1. NORDITROPIN [Suspect]
     Active Substance: SOMATROPIN
     Indication: TURNER^S SYNDROME
     Dosage: QD NIGHTLY
     Route: 065

REACTIONS (3)
  - Hypertension [Recovering/Resolving]
  - Congenital cystic kidney disease [Not Recovered/Not Resolved]
  - Kidney enlargement [Not Recovered/Not Resolved]
